FAERS Safety Report 7905815-0 (Version None)
Quarter: 2011Q4

REPORT INFORMATION
  Report Type: 
  Country: None (occurrence: None)
  Receive Date: 20111108
  Receipt Date: 20111024
  Transmission Date: 20120403
  Serious: Yes (Other)
  Sender: FDA-Public Use
  Company Number: 1000025186

PATIENT
  Age: 40 Year
  Sex: Male

DRUGS (4)
  1. VALPROATE SODIUM [Suspect]
     Indication: PRODUCT USED FOR UNKNOWN INDICATION
  2. CITALOPRAM HYDROBROMIDE [Suspect]
     Indication: PRODUCT USED FOR UNKNOWN INDICATION
  3. TRAZODONE HCL [Suspect]
     Indication: PRODUCT USED FOR UNKNOWN INDICATION
     Dosage: 50-100 MG AT BED TIME
  4. LITHIUM CARBONATE [Suspect]
     Indication: PRODUCT USED FOR UNKNOWN INDICATION
     Dosage: 900 MG (300 MG, 3 IN 1 D)

REACTIONS (11)
  - DIPLOPIA [None]
  - DYSARTHRIA [None]
  - DIZZINESS [None]
  - COORDINATION ABNORMAL [None]
  - MUSCULAR WEAKNESS [None]
  - INSOMNIA [None]
  - NECK PAIN [None]
  - PARAESTHESIA [None]
  - VERTIGO [None]
  - VISION BLURRED [None]
  - ABASIA [None]
